FAERS Safety Report 5052898-4 (Version None)
Quarter: 2006Q3

REPORT INFORMATION
  Report Type: 
  Country: None (occurrence: None)
  Receive Date: 20060712
  Receipt Date: 20060630
  Transmission Date: 20061208
  Serious: Yes (Other)
  Sender: FDA-Public Use
  Company Number: 2006-07-0324

PATIENT
  Sex: Female

DRUGS (2)
  1. PEG-INTRON [Suspect]
  2. RIBAVIRIN [Suspect]

REACTIONS (1)
  - BONE MARROW DISORDER [None]
